FAERS Safety Report 18682773 (Version 1)
Quarter: 2020Q4

REPORT INFORMATION
  Report Type: Spontaneous
  Country: IN (occurrence: IN)
  Receive Date: 20201230
  Receipt Date: 20201230
  Transmission Date: 20210114
  Serious: Yes (Other)
  Sender: FDA-Public Use
  Company Number: PHBS1986IN02410

PATIENT
  Age: 54 Year
  Sex: Male

DRUGS (3)
  1. RIFAMPICIN [Suspect]
     Active Substance: RIFAMPIN
     Indication: LEPROSY
     Dosage: 600 MG, QD
     Route: 065
  2. DAPSONE. [Suspect]
     Active Substance: DAPSONE
     Indication: LEPROSY
     Dosage: 100 MG, QD
     Route: 065
  3. LAMPREN [Suspect]
     Active Substance: CLOFAZIMINE
     Indication: LEPROSY
     Dosage: 100 MG
     Route: 048

REACTIONS (2)
  - Dermatitis exfoliative [Unknown]
  - Pruritus [Unknown]

NARRATIVE: CASE EVENT DATE: 1985
